FAERS Safety Report 7947871 (Version 2)
Quarter: 2012Q4

REPORT INFORMATION
  Report Type: 
  Country: US (occurrence: US)
  Receive Date: 20110517
  Receipt Date: 20121213
  Transmission Date: 20130627
  Serious: Yes (Hospitalization, Other)
  Sender: FDA-Public Use
  Company Number: US-BAYER-201037610NA

PATIENT
  Age: 23 Year
  Sex: Female
  Weight: 77.1 kg

DRUGS (9)
  1. YAZ [Suspect]
     Indication: ACNE
  2. YASMIN [Suspect]
     Indication: ACNE
  3. OCELLA [Suspect]
     Indication: ACNE
  4. PREVPAC [Concomitant]
     Indication: HELICOBACTER PYLORI TEST POSITIVE
  5. DEPO [Concomitant]
  6. ZANTAC [Concomitant]
     Dosage: 300 mg, QD
     Dates: start: 20060729
  7. ZANTAC [Concomitant]
     Dosage: 75 mg, UNK
  8. KLONOPIN [Concomitant]
     Dosage: 0.5 mg, BID
     Route: 048
  9. XANAX [Concomitant]
     Dosage: UNK
     Dates: start: 2004, end: 2009

REACTIONS (14)
  - Cholecystectomy [None]
  - Cholecystitis chronic [None]
  - Anxiety [None]
  - Emotional distress [None]
  - Palpitations [None]
  - Insomnia [None]
  - Amnesia [None]
  - Dyspnoea [None]
  - Gastrooesophageal reflux disease [None]
  - Abdominal pain upper [None]
  - Dyspepsia [None]
  - Brain mass [None]
  - Intracranial lipoma [None]
  - Migraine [None]
